FAERS Safety Report 5601917-2 (Version None)
Quarter: 2008Q1

REPORT INFORMATION
  Report Type: 
  Country: None (occurrence: None)
  Receive Date: 20080111
  Receipt Date: 20070914
  Transmission Date: 20080703
  Serious: Yes (Other)
  Sender: FDA-Public Use
  Company Number: HQWYE557505MAY05

PATIENT
  Age: 64 Year
  Sex: Female

DRUGS (4)
  1. PREMPRO [Suspect]
     Indication: HORMONE REPLACEMENT THERAPY
     Dosage: ORAL
     Route: 048
     Dates: start: 19980801, end: 20030701
  2. MEDROXYPROGESTERONE ACETATE [Suspect]
  3. PREMARIN [Suspect]
     Dosage: ORAL
     Route: 048
     Dates: start: 19840101, end: 19980801
  4. PROVERA [Suspect]
     Dosage: ORAL
     Route: 048
     Dates: start: 19840101, end: 19980101

REACTIONS (1)
  - BREAST CANCER [None]
